FAERS Safety Report 16640749 (Version 2)
Quarter: 2019Q3

REPORT INFORMATION
  Report Type: Spontaneous
  Country: US (occurrence: US)
  Receive Date: 20190729
  Receipt Date: 20190904
  Transmission Date: 20191004
  Serious: Yes (Disabling, Other)
  Sender: FDA-Public Use
  Company Number: US-EMD SERONO-9106632

PATIENT
  Age: 39 Year
  Sex: Female
  Weight: 57 kg

DRUGS (4)
  1. LEVETIRACETAM. [Concomitant]
     Active Substance: LEVETIRACETAM
     Indication: SEIZURE
     Route: 048
  2. BACLOFEN. [Concomitant]
     Active Substance: BACLOFEN
     Indication: MULTIPLE SCLEROSIS
     Route: 048
  3. CITALOPRAM [Concomitant]
     Active Substance: CITALOPRAM HYDROBROMIDE
     Indication: ANXIETY
     Route: 048
  4. REBIF [Suspect]
     Active Substance: INTERFERON BETA-1A
     Indication: MULTIPLE SCLEROSIS
     Route: 058
     Dates: start: 2015

REACTIONS (9)
  - Head injury [Unknown]
  - Seizure [Recovered/Resolved]
  - Influenza like illness [Unknown]
  - Ill-defined disorder [Unknown]
  - Joint injury [Unknown]
  - Heat stroke [Unknown]
  - Syncope [Recovering/Resolving]
  - Post concussion syndrome [Unknown]
  - Feeling hot [Unknown]

NARRATIVE: CASE EVENT DATE: 20190101
